FAERS Safety Report 14020320 (Version 2)
Quarter: 2017Q4

REPORT INFORMATION
  Report Type: Spontaneous
  Country: FR (occurrence: FR)
  Receive Date: 20170928
  Receipt Date: 20171009
  Transmission Date: 20180321
  Serious: Yes (Death, Hospitalization)
  Sender: FDA-Public Use
  Company Number: FR-TEVA-808994ROM

PATIENT
  Age: 34 Year
  Sex: Male

DRUGS (7)
  1. LACOSAMIDE. [Suspect]
     Active Substance: LACOSAMIDE
     Indication: COMPLETED SUICIDE
     Dosage: 400 MILLIGRAM DAILY;
     Route: 065
  2. PERAMPANEL [Concomitant]
     Active Substance: PERAMPANEL
     Dosage: 8 MILLIGRAM DAILY;
     Route: 065
  3. CLOBAZAM [Concomitant]
     Active Substance: CLOBAZAM
     Route: 065
  4. METOPROLOL. [Suspect]
     Active Substance: METOPROLOL
     Indication: COMPLETED SUICIDE
     Dosage: 100 MILLIGRAM DAILY;
     Route: 065
  5. LAMOTRIGINE. [Concomitant]
     Active Substance: LAMOTRIGINE
     Dosage: 200 MILLIGRAM DAILY;
     Route: 065
  6. METOPROLOL. [Suspect]
     Active Substance: METOPROLOL
     Dosage: ESTIMATED INTAKE OF 3.5G
     Route: 048
  7. LACOSAMIDE. [Suspect]
     Active Substance: LACOSAMIDE
     Dosage: ESTIMATED INTAKE OF 8.4G
     Route: 048

REACTIONS (11)
  - Cardiac arrest [Fatal]
  - Anuria [Unknown]
  - Renal failure [Unknown]
  - Toxicity to various agents [Fatal]
  - Metabolic acidosis [Unknown]
  - Mydriasis [Unknown]
  - Completed suicide [Fatal]
  - Generalised tonic-clonic seizure [Unknown]
  - Overdose [Fatal]
  - Ejection fraction decreased [Unknown]
  - Atrioventricular block [Fatal]
